FAERS Safety Report 4585121-5 (Version None)
Quarter: 2005Q1

REPORT INFORMATION
  Report Type: 
  Country: None (occurrence: None)
  Receive Date: 20050217
  Receipt Date: 20050104
  Transmission Date: 20050727
  Serious: No
  Sender: FDA-Public Use
  Company Number: US-GLAXOSMITHKLINE-A0539312A

PATIENT
  Sex: Male

DRUGS (5)
  1. WELLBUTRIN [Suspect]
     Dosage: 1TAB PER DAY
     Route: 048
     Dates: start: 20050104, end: 20050104
  2. LIPITOR [Concomitant]
  3. NEXIUM [Concomitant]
  4. FLONASE [Concomitant]
  5. ALLEGRA [Concomitant]

REACTIONS (1)
  - RASH [None]
